FAERS Safety Report 13299951 (Version 1)
Quarter: 2017Q1

REPORT INFORMATION
  Report Type: Spontaneous
  Country: US (occurrence: US)
  Receive Date: 20170306
  Receipt Date: 20170306
  Transmission Date: 20170428
  Serious: No
  Sender: FDA-Public Use
  Company Number: US-009507513-1702USA008685

PATIENT
  Age: 56 Year
  Sex: Female

DRUGS (1)
  1. INTRON A [Suspect]
     Active Substance: INTERFERON ALFA-2B
     Indication: MALIGNANT MELANOMA
     Dosage: 20 MILLION UNITS 3X/WEEK
     Route: 058

REACTIONS (1)
  - General symptom [Unknown]

NARRATIVE: CASE EVENT DATE: 201611
